FAERS Safety Report 8241022-2 (Version None)
Quarter: 2012Q1

REPORT INFORMATION
  Report Type: 
  Country: None (occurrence: None)
  Receive Date: 20120328
  Receipt Date: 20120323
  Transmission Date: 20120608
  Serious: Yes (Hospitalization, Other)
  Sender: FDA-Public Use
  Company Number: US-MERCK-1202USA01357

PATIENT
  Age: 79 Year
  Sex: Female
  Weight: 51 kg

DRUGS (2)
  1. FOSAMAX [Suspect]
     Indication: OSTEOPOROSIS
     Route: 048
     Dates: start: 20010101, end: 20110517
  2. SYNTHROID [Concomitant]
     Indication: THYROID DISORDER
     Route: 065

REACTIONS (3)
  - SKIN CANCER [None]
  - FEMUR FRACTURE [None]
  - FALL [None]
